FAERS Safety Report 4299186-1 (Version None)
Quarter: 2004Q1

REPORT INFORMATION
  Report Type: 
  Country: None (occurrence: None)
  Receive Date: 20040217
  Receipt Date: 20040202
  Transmission Date: 20041129
  Serious: Yes (Life-Threatening, Hospitalization)
  Sender: FDA-Public Use
  Company Number: CERZ-10452

PATIENT
  Age: 5 Year
  Sex: Female
  Weight: 19 kg

DRUGS (2)
  1. CEREZYME [Suspect]
     Indication: GAUCHER'S DISEASE
     Dosage: 60 U/KG Q2WKS IV
     Route: 042
     Dates: start: 20031201
  2. CEREZYME [Suspect]
     Indication: GAUCHER'S DISEASE
     Dosage: 10.53 U/KG Q2WKS IV
     Route: 042
     Dates: start: 20020404, end: 20031201

REACTIONS (21)
  - COAGULATION FACTOR IX LEVEL DECREASED [None]
  - COAGULATION FACTOR V LEVEL DECREASED [None]
  - GASTRIC VARICES HAEMORRHAGE [None]
  - HAEMATEMESIS [None]
  - HAEMATOCHEZIA [None]
  - HAEMOGLOBIN DECREASED [None]
  - HEART RATE INCREASED [None]
  - HEPATIC FIBROSIS [None]
  - HEPATOMEGALY [None]
  - LOCALISED OEDEMA [None]
  - NEUTROPHIL PERCENTAGE DECREASED [None]
  - OESOPHAGEAL VARICES HAEMORRHAGE [None]
  - PLATELET COUNT DECREASED [None]
  - PNEUMONIA [None]
  - PORTAL HYPERTENSION [None]
  - PROTHROMBIN LEVEL DECREASED [None]
  - PYREXIA [None]
  - RED BLOOD CELL COUNT DECREASED [None]
  - SPLEEN DISORDER [None]
  - SPLENOMEGALY [None]
  - WHITE BLOOD CELL COUNT DECREASED [None]
